FAERS Safety Report 10658862 (Version 1)
Quarter: 2014Q4

REPORT INFORMATION
  Report Type: Report from Study
  Country: JP (occurrence: JP)
  Receive Date: 20141217
  Receipt Date: 20141217
  Transmission Date: 20150529
  Serious: Yes (Hospitalization)
  Sender: FDA-Public Use
  Company Number: JP-ABBVIE-14K-087-1319541-00

PATIENT
  Age: 20 Year
  Sex: Female
  Weight: 54 kg

DRUGS (24)
  1. HUMIRA [Suspect]
     Active Substance: ADALIMUMAB
     Route: 058
     Dates: start: 20121017
  2. METRONIDAZOLE. [Concomitant]
     Active Substance: METRONIDAZOLE
     Indication: INFECTION PROPHYLAXIS
     Route: 048
     Dates: start: 20140118
  3. GLUCOSE/ACETATED RINGER^S SOLUTION [Concomitant]
     Indication: CROHN^S DISEASE
     Route: 050
     Dates: start: 20140901, end: 20140901
  4. MENATETRENONE [Concomitant]
     Active Substance: MENATETRENONE
     Indication: CROHN^S DISEASE
     Route: 042
     Dates: start: 20140902, end: 20140907
  5. SOLDEM 3A [Concomitant]
     Active Substance: CARBOHYDRATES\POTASSIUM CHLORIDE\SODIUM CHLORIDE\SODIUM LACTATE
     Dates: start: 20140906, end: 20140906
  6. FLAVINE ADENINE DINUCLEOTIDE [Concomitant]
     Indication: CROHN^S DISEASE
     Route: 050
     Dates: start: 20140902, end: 20140907
  7. FERROUS CITRATE [Concomitant]
     Active Substance: FERROUS CITRATE
     Indication: GASTROINTESTINAL HAEMORRHAGE
     Route: 048
     Dates: start: 20140621
  8. HUMIRA [Suspect]
     Active Substance: ADALIMUMAB
     Indication: CROHN^S DISEASE
     Route: 058
     Dates: start: 20120919, end: 20120919
  9. AZATHIOPRINE. [Concomitant]
     Active Substance: AZATHIOPRINE
     Dates: start: 20140830
  10. PETHIDINE HYDROCHLORIDE/LEVALLORPHAN TARTRATE [Concomitant]
     Indication: PHYSICAL EXAMINATION
  11. METOCLOPRAMIDE. [Concomitant]
     Active Substance: METOCLOPRAMIDE
     Indication: CROHN^S DISEASE
     Route: 050
     Dates: start: 20140901, end: 20140901
  12. SOLDEM 3A [Concomitant]
     Active Substance: CARBOHYDRATES\POTASSIUM CHLORIDE\SODIUM CHLORIDE\SODIUM LACTATE
     Indication: CROHN^S DISEASE
     Route: 050
     Dates: start: 20140901, end: 20140901
  13. ASCORBIC ACID. [Concomitant]
     Active Substance: ASCORBIC ACID
     Indication: CROHN^S DISEASE
     Route: 050
     Dates: start: 20140902, end: 20140907
  14. BFLUID [Concomitant]
     Active Substance: AMINO ACIDS\DEXTROSE\ELECTROLYTES NOS\VITAMINS
     Indication: CROHN^S DISEASE
     Route: 050
     Dates: start: 20140902, end: 20140904
  15. AZATHIOPRINE. [Concomitant]
     Active Substance: AZATHIOPRINE
     Indication: CROHN^S DISEASE
     Dosage: 25 MG/3 DAYS
     Route: 048
     Dates: start: 20140812, end: 20140829
  16. PREDNISOLONE. [Concomitant]
     Active Substance: PREDNISOLONE
     Indication: CROHN^S DISEASE
     Dosage: 30 MG/3 DAYS/2 WEEKS
     Route: 048
     Dates: start: 20140830
  17. SOLDEM 3A [Concomitant]
     Active Substance: CARBOHYDRATES\POTASSIUM CHLORIDE\SODIUM CHLORIDE\SODIUM LACTATE
     Dates: start: 20140902, end: 20140904
  18. SOLDEM 3A [Concomitant]
     Active Substance: CARBOHYDRATES\POTASSIUM CHLORIDE\SODIUM CHLORIDE\SODIUM LACTATE
     Dates: start: 20140905, end: 20140905
  19. LEVOFLOXACIN HEMIHYDRATE [Concomitant]
     Active Substance: LEVOFLOXACIN
     Indication: INFECTION PROPHYLAXIS
     Route: 048
     Dates: start: 20140118
  20. GLUCOSE/ACETATED RINGER^S SOLUTION [Concomitant]
     Dates: start: 20140902, end: 20140907
  21. HUMIRA [Suspect]
     Active Substance: ADALIMUMAB
     Route: 058
     Dates: start: 20121003, end: 20121003
  22. EPINASTINE HYDROCHLORIDE. [Concomitant]
     Active Substance: EPINASTINE HYDROCHLORIDE
     Indication: RHINITIS PROPHYLAXIS
     Route: 048
     Dates: start: 20130309, end: 20140425
  23. PETHIDINE HYDROCHLORIDE/LEVALLORPHAN TARTRATE [Concomitant]
     Indication: CROHN^S DISEASE
     Route: 050
     Dates: start: 20140723, end: 20140723
  24. VITAMIN B COMPLEX COX [Concomitant]
     Indication: CROHN^S DISEASE
     Route: 050
     Dates: start: 20140902, end: 20140907

REACTIONS (6)
  - Anaemia [Recovered/Resolved]
  - Arthritis [Recovered/Resolved]
  - Stomatitis [Recovered/Resolved]
  - Erythema nodosum [Recovered/Resolved]
  - Gastrointestinal haemorrhage [Recovered/Resolved]
  - Crohn^s disease [Recovered/Resolved]

NARRATIVE: CASE EVENT DATE: 20140621
